FAERS Safety Report 7065598-6 (Version None)
Quarter: 2010Q4

REPORT INFORMATION
  Report Type: 
  Country: None (occurrence: None)
  Receive Date: 20101022
  Receipt Date: 20101022
  Transmission Date: 20110411
  Serious: Yes (Other)
  Sender: FDA-Public Use
  Company Number: None

PATIENT
  Age: 22 Year
  Sex: Female

DRUGS (1)
  1. GENERIC DIAMOX [Suspect]
     Indication: BENIGN INTRACRANIAL HYPERTENSION
     Dosage: 500 MG 1 PO 2X DAY
     Route: 048
     Dates: start: 20100701

REACTIONS (3)
  - DIARRHOEA [None]
  - NAUSEA [None]
  - PARAESTHESIA [None]
